FAERS Safety Report 7411654-X (Version None)
Quarter: 2011Q2

REPORT INFORMATION
  Report Type: 
  Country: None (occurrence: None)
  Receive Date: 20110413
  Receipt Date: 20101013
  Transmission Date: 20111010
  Serious: No
  Sender: FDA-Public Use
  Company Number: US-BRISTOL-MYERS SQUIBB COMPANY-15332133

PATIENT
  Age: 64 Year
  Sex: Male
  Weight: 73 kg

DRUGS (3)
  1. OXALIPLATIN [Concomitant]
  2. FLUOROURACIL [Concomitant]
  3. ERBITUX [Suspect]
     Indication: COLON CANCER
     Dosage: TREATMENT STARTED ON 2.5 MONTHS AGO
     Dates: start: 20100101

REACTIONS (1)
  - DERMATITIS ACNEIFORM [None]
